FAERS Safety Report 5155140-9 (Version None)
Quarter: 2006Q4

REPORT INFORMATION
  Report Type: 
  Country: None (occurrence: None)
  Receive Date: 20061121
  Receipt Date: 20061108
  Transmission Date: 20070319
  Serious: Yes (Hospitalization)
  Sender: FDA-Public Use
  Company Number: US-ELI_LILLY_AND_COMPANY-US200611001709

PATIENT
  Sex: Female

DRUGS (1)
  1. FORTEO [Suspect]
     Indication: OSTEOPOROSIS
     Dosage: 20 UG, UNK
     Dates: start: 20061017

REACTIONS (5)
  - AMNESIA [None]
  - BLOOD GLUCOSE INCREASED [None]
  - DELIRIUM [None]
  - MENINGITIS BACTERIAL [None]
  - PHARMACEUTICAL PRODUCT COMPLAINT [None]
